FAERS Safety Report 15956481 (Version 1)
Quarter: 2019Q1

REPORT INFORMATION
  Report Type: Spontaneous
  Country: US (occurrence: US)
  Receive Date: 20190213
  Receipt Date: 20190213
  Transmission Date: 20190417
  Serious: No
  Sender: FDA-Public Use
  Company Number: US-TEVA-2019-US-1001152

PATIENT
  Sex: Female
  Weight: 76.66 kg

DRUGS (7)
  1. TEVA CELECOXIB [Suspect]
     Active Substance: CELECOXIB
     Indication: ARTHRITIS
     Route: 048
     Dates: start: 2017
  2. LEVOTHYROXINE. [Concomitant]
     Active Substance: LEVOTHYROXINE
     Indication: THYROID DISORDER
     Dosage: .15 MILLIGRAM DAILY;
     Route: 048
     Dates: start: 2007
  3. ALBUTEROL. [Concomitant]
     Active Substance: ALBUTEROL
     Indication: ASTHMA
     Route: 065
  4. TEVA CELECOXIB [Suspect]
     Active Substance: CELECOXIB
     Indication: MUSCLE TIGHTNESS
  5. SYMBICORT [Concomitant]
     Active Substance: BUDESONIDE\FORMOTEROL FUMARATE DIHYDRATE
     Indication: ASTHMA
     Dosage: 160-4.5 ONE PUFF IN THE MORNING, ONE PUFF AT NIGHT
     Route: 065
  6. VERAPAMIL [Concomitant]
     Active Substance: VERAPAMIL HYDROCHLORIDE
     Indication: BLOOD PRESSURE MEASUREMENT
     Dosage: 360 MILLIGRAM DAILY;
  7. HYDROCHLOROTHIAZIDE. [Concomitant]
     Active Substance: HYDROCHLOROTHIAZIDE
     Indication: BLOOD PRESSURE MEASUREMENT
     Dosage: 12.5 MILLIGRAM DAILY;
     Route: 048
     Dates: start: 2011

REACTIONS (6)
  - Back pain [Unknown]
  - Muscle tightness [Unknown]
  - Product substitution issue [Unknown]
  - Drug effect decreased [Unknown]
  - Pain [Unknown]
  - Arthralgia [Unknown]
